FAERS Safety Report 14624440 (Version 1)
Quarter: 2018Q1

REPORT INFORMATION
  Report Type: Spontaneous
  Country: US (occurrence: US)
  Receive Date: 20180312
  Receipt Date: 20180312
  Transmission Date: 20180509
  Serious: No
  Sender: FDA-Public Use
  Company Number: US-ELI_LILLY_AND_COMPANY-US201803000217

PATIENT
  Sex: Female

DRUGS (2)
  1. SOMATROPIN 12MG [Suspect]
     Active Substance: SOMATROPIN
     Indication: GROWTH HORMONE DEFICIENCY
     Dosage: 2.3 MG, UNK
     Route: 058
  2. SOMATROPIN 12MG [Suspect]
     Active Substance: SOMATROPIN
     Dosage: UNK, UNKNOWN
     Route: 065

REACTIONS (2)
  - Underdose [Not Recovered/Not Resolved]
  - Device malfunction [None]
